FAERS Safety Report 11438247 (Version 3)
Quarter: 2015Q4

REPORT INFORMATION
  Report Type: Spontaneous
  Country: US (occurrence: US)
  Receive Date: 20150901
  Receipt Date: 20151028
  Transmission Date: 20160304
  Serious: Yes (Other)
  Sender: FDA-Public Use
  Company Number: US-BEH-2015053394

PATIENT
  Sex: Female

DRUGS (1)
  1. PRIVIGEN [Suspect]
     Active Substance: HUMAN IMMUNOGLOBULIN G
     Indication: IMMUNODEFICIENCY COMMON VARIABLE
     Dates: start: 20140731

REACTIONS (9)
  - Wound [Unknown]
  - Pneumonia [Unknown]
  - Weight increased [Unknown]
  - Infection [Unknown]
  - Hypothyroidism [Unknown]
  - Foot fracture [Unknown]
  - Mental disorder [Unknown]
  - Influenza [Unknown]
  - Suicidal ideation [Unknown]
